FAERS Safety Report 21921000 (Version 3)
Quarter: 2024Q1

REPORT INFORMATION
  Report Type: Report from Study
  Country: CH (occurrence: CH)
  Receive Date: 20230127
  Receipt Date: 20240215
  Transmission Date: 20240410
  Serious: Yes (Other)
  Sender: FDA-Public Use
  Company Number: CH-Stemline Therapeutics, Inc.-2023ST000053

PATIENT
  Age: 73 Year
  Sex: Male

DRUGS (4)
  1. ELZONRIS [Suspect]
     Active Substance: TAGRAXOFUSP-ERZS
     Indication: Blastic plasmacytoid dendritic cell neoplasia
     Dosage: FIRST CYCLE: 3 INFUSIONS WITHIN 14 DAYS
     Route: 042
     Dates: start: 20221128
  2. ELZONRIS [Suspect]
     Active Substance: TAGRAXOFUSP-ERZS
     Indication: Blastic plasmacytoid dendritic cell neoplasia
     Dosage: SECOND CYCLE: 3 INFUSIONS (1ST INFUSION ON 9.1., 2ND ON 10.2 AND 3RD. ON 12.1.2023)
     Route: 042
     Dates: start: 20230109
  3. ELZONRIS [Suspect]
     Active Substance: TAGRAXOFUSP-ERZS
     Indication: Blastic plasmacytoid dendritic cell neoplasia
  4. ELZONRIS [Suspect]
     Active Substance: TAGRAXOFUSP-ERZS
     Indication: Blastic plasmacytoid dendritic cell neoplasia

REACTIONS (6)
  - Thrombocytopenia [Unknown]
  - Inappropriate schedule of product administration [Unknown]
  - Blood lactate dehydrogenase increased [Unknown]
  - Transaminases increased [Unknown]
  - Blood albumin decreased [Unknown]
  - Rash [Recovered/Resolved]

NARRATIVE: CASE EVENT DATE: 20220101
